FAERS Safety Report 9527835 (Version 1)
Quarter: 2013Q1

REPORT INFORMATION
  Report Type: Spontaneous
  Country: US (occurrence: None)
  Receive Date: 20130314
  Receipt Date: 20130314
  Transmission Date: 20140127
  Serious: No
  Sender: FDA-Public Use
  Company Number: 1301USA001111

PATIENT
  Age: 54 Year
  Sex: Male

DRUGS (3)
  1. VICTRELIS [Suspect]
     Indication: HEPATITIS C
     Route: 048
  2. PEGASYS [Suspect]
     Dates: start: 20121018
  3. RIBASPHERE [Suspect]
     Dates: start: 20121018

REACTIONS (4)
  - Hunger [None]
  - Dry throat [None]
  - Dyspepsia [None]
  - Fatigue [None]
